FAERS Safety Report 7107721-0 (Version None)
Quarter: 2010Q4

REPORT INFORMATION
  Report Type: 
  Country: None (occurrence: None)
  Receive Date: 20101117
  Receipt Date: 20101108
  Transmission Date: 20110411
  Serious: Yes (Other)
  Sender: FDA-Public Use
  Company Number: GB-BRISTOL-MYERS SQUIBB COMPANY-15384829

PATIENT

DRUGS (1)
  1. ABATACEPT [Suspect]

REACTIONS (2)
  - HIP SURGERY [None]
  - TOOTH INFECTION [None]
